FAERS Safety Report 5362917-3 (Version None)
Quarter: 2007Q2

REPORT INFORMATION
  Report Type: 
  Country: None (occurrence: None)
  Receive Date: 20070614
  Receipt Date: 20070220
  Transmission Date: 20071010
  Serious: Yes (Hospitalization)
  Sender: FDA-Public Use
  Company Number: MEDI-0005156

PATIENT
  Age: 5 Month

DRUGS (2)
  1. SYNAGIS [Suspect]
     Indication: ANTIVIRAL PROPHYLAXIS
     Dosage: 45 MG, INTRAMUSCULAR
     Route: 030
     Dates: start: 20060206, end: 20060307
  2. SYNAGIS [Suspect]
     Indication: ANTIVIRAL PROPHYLAXIS
     Dosage: 45 MG, INTRAMUSCULAR
     Route: 030
     Dates: start: 20060206

REACTIONS (2)
  - ASTHMA [None]
  - INGUINAL HERNIA [None]
